FAERS Safety Report 14735697 (Version 2)
Quarter: 2018Q2

REPORT INFORMATION
  Report Type: Spontaneous
  Country: NL (occurrence: NL)
  Receive Date: 20180409
  Receipt Date: 20180413
  Transmission Date: 20180711
  Serious: Yes (Hospitalization)
  Sender: FDA-Public Use
  Company Number: NL-JNJFOC-20180403867

PATIENT
  Age: 56 Year
  Sex: Female
  Weight: 64 kg

DRUGS (3)
  1. PARNATE [Interacting]
     Active Substance: TRANYLCYPROMINE SULFATE
     Indication: MAJOR DEPRESSION
     Route: 065
  2. DUROGESIC [Suspect]
     Active Substance: FENTANYL
     Indication: SPINAL FRACTURE
     Route: 065
     Dates: start: 20170402
  3. PARNATE [Interacting]
     Active Substance: TRANYLCYPROMINE SULFATE
     Indication: MAJOR DEPRESSION
     Route: 065
     Dates: start: 20160304

REACTIONS (2)
  - Drug interaction [Recovered/Resolved]
  - Psychotic disorder [Recovered/Resolved]

NARRATIVE: CASE EVENT DATE: 20170404
